FAERS Safety Report 22762672 (Version 4)
Quarter: 2023Q4

REPORT INFORMATION
  Report Type: Spontaneous
  Country: US (occurrence: US)
  Receive Date: 20230728
  Receipt Date: 20231005
  Transmission Date: 20240109
  Serious: Yes (Other)
  Sender: FDA-Public Use
  Company Number: US-PFIZER INC-202300260102

PATIENT
  Age: 78 Year
  Sex: Female
  Weight: 66.22 kg

DRUGS (1)
  1. PREMARIN [Suspect]
     Active Substance: ESTROGENS, CONJUGATED
     Indication: Oestrogen therapy
     Dosage: UNK (1.06OZ 30G; 3 TIMES EVERY WEEK AT BEDTIME 1^ LONG SMALL APPLICATOR 1 GRAM)
     Route: 067

REACTIONS (2)
  - Dementia [Unknown]
  - Off label use [Unknown]
